FAERS Safety Report 9815410 (Version 1)
Quarter: 2014Q1

REPORT INFORMATION
  Report Type: Spontaneous
  Country: DE (occurrence: DE)
  Receive Date: 20140114
  Receipt Date: 20140114
  Transmission Date: 20141002
  Serious: Yes (Other)
  Sender: FDA-Public Use
  Company Number: DE-ASTRAZENECA-2014SE01154

PATIENT
  Sex: Male

DRUGS (3)
  1. ATACAND [Suspect]
     Route: 048
     Dates: start: 201301
  2. HCT [Concomitant]
  3. SPIRONOLACTON [Concomitant]

REACTIONS (1)
  - Renin increased [Unknown]
